FAERS Safety Report 4969075-5 (Version None)
Quarter: 2006Q2

REPORT INFORMATION
  Report Type: 
  Country: None (occurrence: None)
  Receive Date: 20060405
  Receipt Date: 20060323
  Transmission Date: 20061013
  Serious: Yes (Hospitalization)
  Sender: FDA-Public Use
  Company Number: 223233

PATIENT
  Age: 84 Year
  Sex: Male
  Weight: 65.3 kg

DRUGS (4)
  1. AVASTIN [Suspect]
     Indication: SQUAMOUS CELL CARCINOMA
  2. ASPIRIN [Concomitant]
  3. DIGOXIN [Concomitant]
  4. SYNTHROID [Concomitant]

REACTIONS (18)
  - ABASIA [None]
  - ANOREXIA [None]
  - ASTHENIA [None]
  - BLOOD GLUCOSE INCREASED [None]
  - BLOOD POTASSIUM DECREASED [None]
  - BLOOD PRESSURE INCREASED [None]
  - BLOOD UREA INCREASED [None]
  - CONFUSIONAL STATE [None]
  - DEHYDRATION [None]
  - DYSPHAGIA [None]
  - FATIGUE [None]
  - HAEMATOCRIT DECREASED [None]
  - HEART RATE INCREASED [None]
  - ORAL INTAKE REDUCED [None]
  - OXYGEN SATURATION DECREASED [None]
  - PLATELET COUNT DECREASED [None]
  - WEIGHT DECREASED [None]
  - WHITE BLOOD CELL COUNT DECREASED [None]
